FAERS Safety Report 22836646 (Version 4)
Quarter: 2023Q4

REPORT INFORMATION
  Report Type: Report from Study
  Country: US (occurrence: US)
  Receive Date: 20230818
  Receipt Date: 20231128
  Transmission Date: 20240110
  Serious: No
  Sender: FDA-Public Use
  Company Number: US-002147023-NVSC2023US179940

PATIENT
  Sex: Female

DRUGS (1)
  1. ENTRESTO [Suspect]
     Active Substance: SACUBITRIL\VALSARTAN
     Indication: Product used for unknown indication
     Dosage: BID (24/26 MG)
     Route: 048

REACTIONS (6)
  - Fibromyalgia [Unknown]
  - Arthritis [Unknown]
  - Condition aggravated [Unknown]
  - Decreased activity [Unknown]
  - Product availability issue [Unknown]
  - Hypotension [Unknown]
